FAERS Safety Report 5420950-7 (Version None)
Quarter: 2007Q3

REPORT INFORMATION
  Report Type: 
  Country: None (occurrence: None)
  Receive Date: 20070816
  Receipt Date: 20070803
  Transmission Date: 20080115
  Serious: Yes (Other)
  Sender: FDA-Public Use
  Company Number: 070806-0000740

PATIENT
  Age: 5 Day

DRUGS (1)
  1. NEOPROFEN [Suspect]
     Indication: DRUG USE FOR UNKNOWN INDICATION

REACTIONS (3)
  - INTESTINAL PERFORATION [None]
  - INTRA-ABDOMINAL HAEMORRHAGE [None]
  - NEONATAL DISORDER [None]
